FAERS Safety Report 23074022 (Version 1)
Quarter: 2023Q4

REPORT INFORMATION
  Report Type: Report from Study
  Country: JP (occurrence: JP)
  Receive Date: 20231017
  Receipt Date: 20231017
  Transmission Date: 20240109
  Serious: Yes (Life-Threatening, Other)
  Sender: FDA-Public Use
  Company Number: JP-002147023-NVSJ2022JP277312

PATIENT
  Age: 79 Year
  Sex: Female
  Weight: 72.5 kg

DRUGS (6)
  1. RITUXIMAB [Suspect]
     Active Substance: RITUXIMAB
     Indication: Follicular lymphoma
     Dosage: 375 MG/M2 (617 MG) (ON DAYS 1, 8, 15 AND 22 OF CYCLE 1)
     Route: 042
     Dates: start: 20220309
  2. RITUXIMAB [Suspect]
     Active Substance: RITUXIMAB
     Dosage: 375 MG/M2 (617 MG) (ON DAYS 1, 8, 15 AND 22 OF CYCLE 1)
     Route: 042
  3. ZOLEDRONIC ACID [Suspect]
     Active Substance: ZOLEDRONIC ACID
     Indication: Hypercalcaemia
     Dosage: 4 MG, QD
     Route: 042
     Dates: start: 20220316, end: 20220316
  4. LENALIDOMIDE [Suspect]
     Active Substance: LENALIDOMIDE
     Indication: Follicular lymphoma
     Dosage: 10 MG, QD
     Route: 048
     Dates: start: 20220308, end: 20220323
  5. TRAMADOL [Concomitant]
     Active Substance: TRAMADOL\TRAMADOL HYDROCHLORIDE
     Indication: Product used for unknown indication
     Dosage: UNK
     Route: 065
     Dates: end: 20220323
  6. ASPIRIN [Concomitant]
     Active Substance: ASPIRIN
     Indication: Product used for unknown indication
     Dosage: UNK
     Route: 065
     Dates: end: 20220323

REACTIONS (8)
  - Acute kidney injury [Recovered/Resolved with Sequelae]
  - Weight increased [Unknown]
  - Blood creatinine increased [Unknown]
  - Urine output decreased [Unknown]
  - Dyspnoea [Unknown]
  - Pulmonary oedema [Unknown]
  - Chronic kidney disease [Unknown]
  - Hypercalcaemia [Recovered/Resolved]

NARRATIVE: CASE EVENT DATE: 20220322
